FAERS Safety Report 9261432 (Version 2)
Quarter: 2013Q2

REPORT INFORMATION
  Report Type: Spontaneous
  Country: GB (occurrence: GB)
  Receive Date: 20130429
  Receipt Date: 20130502
  Transmission Date: 20140414
  Serious: Yes (Other)
  Sender: FDA-Public Use
  Company Number: GB-009507513-1302GBR010967

PATIENT
  Age: 36 Year
  Sex: Female

DRUGS (1)
  1. NEXPLANON [Suspect]
     Dosage: 1 DF, UNKNOWN
     Route: 059
     Dates: start: 20120113

REACTIONS (5)
  - Medical device removal [Unknown]
  - Device dislocation [Unknown]
  - Pulmonary fibrosis [Unknown]
  - Complication of device insertion [Unknown]
  - Complication of device removal [Unknown]
